FAERS Safety Report 7693627-5 (Version None)
Quarter: 2011Q3

REPORT INFORMATION
  Report Type: 
  Country: None (occurrence: None)
  Receive Date: 20110819
  Receipt Date: 20110816
  Transmission Date: 20111222
  Serious: Yes (Death)
  Sender: FDA-Public Use
  Company Number: JP-ROCHE-752744

PATIENT
  Sex: Male

DRUGS (13)
  1. CARVEDILOL [Concomitant]
     Dosage: DOSAGE IS UNCERTAIN.
     Route: 048
  2. TAMIFLU [Suspect]
     Indication: INFLUENZA
     Route: 048
     Dates: start: 20110107, end: 20110107
  3. DIOVAN [Concomitant]
     Dosage: DOSAGE IS UNCERTAIN.
     Route: 048
  4. WARFARIN SODIUM [Concomitant]
     Dosage: DOSAGE IS UNCERTAIN.
     Route: 048
  5. ACETAMINOPHEN [Concomitant]
     Dosage: DOSAGE IS UNCERTAIN, DOSE FORM: PERORAL AGENT
     Route: 048
     Dates: start: 20110107
  6. FAMOTIDINE [Concomitant]
     Dosage: DOSAGE IS UNCERTAIN.
  7. ASPIRIN [Concomitant]
     Dosage: DOSAGE IS UNCERTAIN.
     Route: 048
  8. DIGOXIN [Concomitant]
     Dosage: DOSAGE IS UNCERTAIN.
  9. PRAVASTATIN SODIUM [Concomitant]
     Dosage: DOSE FORM: PERORAL AGENT, DOSAGE IS UNCERTAIN.
     Route: 048
  10. NORVASC [Concomitant]
     Dosage: DOSAGE IS UNCERTAIN.
     Route: 048
  11. DEPAS [Concomitant]
     Dosage: DOSE FORM: PERORAL AGENT, DOSAGE IS UNCERTAIN.
     Route: 048
  12. LENDORMIN [Concomitant]
     Dosage: DOSAGE IS UNCERTAIN.
     Route: 048
  13. NITROGLYCERIN [Concomitant]
     Dosage: DRUG NAME: MILLIS; FORM: TAPE, DOSAGE IS UNCERTAIN.
     Route: 062

REACTIONS (2)
  - RESPIRATORY FAILURE [None]
  - CARDIAC FAILURE ACUTE [None]
